FAERS Safety Report 5552892-0 (Version None)
Quarter: 2007Q4

REPORT INFORMATION
  Report Type: 
  Country: None (occurrence: None)
  Receive Date: 20071211
  Receipt Date: 20071204
  Transmission Date: 20080405
  Serious: Yes (Hospitalization, Other)
  Sender: FDA-Public Use
  Company Number: 2007333739

PATIENT

DRUGS (2)
  1. SUDAFED 12 HOUR [Suspect]
     Indication: EAR CONGESTION
     Dosage: 5 PILLS WITHIN ONE HOUR, ORAL
     Route: 048
     Dates: start: 20071024, end: 20071024
  2. ADALAT [Concomitant]

REACTIONS (4)
  - HYPOAESTHESIA [None]
  - HYPOAESTHESIA FACIAL [None]
  - PANIC REACTION [None]
  - VISION BLURRED [None]
